FAERS Safety Report 26077894 (Version 1)
Quarter: 2025Q4

REPORT INFORMATION
  Report Type: Spontaneous
  Country: US (occurrence: US)
  Receive Date: 20251122
  Receipt Date: 20251122
  Transmission Date: 20260119
  Serious: Yes (Other)
  Sender: MDD OPERATIONS
  Company Number: US-MDD US Operations-MDD202509-003492

PATIENT
  Age: 65 Year
  Sex: Male

DRUGS (4)
  1. ONAPGO [Suspect]
     Active Substance: APOMORPHINE HYDROCHLORIDE
     Indication: Parkinson^s disease
     Dosage: 1.5 MG/HR (WHEN EXPERIENCING HALLUCINATION)
     Route: 058
     Dates: start: 20250827
  2. ONAPGO [Suspect]
     Active Substance: APOMORPHINE HYDROCHLORIDE
     Indication: On and off phenomenon
     Dosage: 2 MG/HR (WHEN EXPERIENCING SLEEPINESS)
     Route: 058
     Dates: start: 20250827
  3. ONAPGO [Suspect]
     Active Substance: APOMORPHINE HYDROCHLORIDE
     Dosage: 2 MG PER HOUR (FOR 16 HOURS)
     Route: 058
  4. ONAPGO [Suspect]
     Active Substance: APOMORPHINE HYDROCHLORIDE
     Dosage: 16 HOURS A DAY

REACTIONS (8)
  - Hallucination [Recovered/Resolved]
  - Infusion site nodule [Unknown]
  - Somnolence [Recovered/Resolved]
  - Fatigue [Recovered/Resolved]
  - Product dose omission issue [Unknown]
  - Device infusion issue [Unknown]
  - Device alarm issue [Unknown]
  - Needle issue [Unknown]

NARRATIVE: CASE EVENT DATE: 20250901
